FAERS Safety Report 14618199 (Version 2)
Quarter: 2018Q2

REPORT INFORMATION
  Report Type: Spontaneous
  Country: PT (occurrence: PT)
  Receive Date: 20180309
  Receipt Date: 20180410
  Transmission Date: 20180711
  Serious: No
  Sender: FDA-Public Use
  Company Number: PT-JNJFOC-20180307740

PATIENT
  Age: 83 Year
  Sex: Female

DRUGS (2)
  1. DAFLON (DIOSMIN/HESPERIDIN) [Concomitant]
     Active Substance: DIOSMIN\HESPERIDIN
     Indication: VARICOSE VEIN
     Route: 065
  2. XARELTO [Suspect]
     Active Substance: RIVAROXABAN
     Indication: THROMBOPHLEBITIS
     Route: 048
     Dates: start: 20180228, end: 20180228

REACTIONS (5)
  - Chromaturia [Recovering/Resolving]
  - Urinary tract infection [Recovered/Resolved]
  - Off label use [Unknown]
  - Epistaxis [Recovering/Resolving]
  - Product use in unapproved indication [Unknown]

NARRATIVE: CASE EVENT DATE: 20180228
